FAERS Safety Report 5878463-4 (Version None)
Quarter: 2008Q3

REPORT INFORMATION
  Report Type: 
  Country: None (occurrence: None)
  Receive Date: 20080910
  Receipt Date: 20080830
  Transmission Date: 20090109
  Serious: Yes (Other)
  Sender: FDA-Public Use
  Company Number: CHPA2008US14514

PATIENT
  Age: 51 Year
  Sex: Female

DRUGS (2)
  1. MAALOX MS TOTAL STOMACH RELIEF (NCH) (BISMUTH SUBSALICYLATE) SUSPENSIO [Suspect]
     Indication: DIARRHOEA
     Dosage: 6 TSP, QH, ORAL
     Route: 048
     Dates: start: 20080823, end: 20080829
  2. LORAZEPAM [Concomitant]

REACTIONS (3)
  - BACK PAIN [None]
  - GASTRIC ULCER HAEMORRHAGE [None]
  - HAEMATOCHEZIA [None]
